FAERS Safety Report 17325160 (Version 1)
Quarter: 2020Q1

REPORT INFORMATION
  Report Type: Spontaneous
  Country: NL (occurrence: NL)
  Receive Date: 20200127
  Receipt Date: 20200127
  Transmission Date: 20200409
  Serious: Yes (Hospitalization)
  Sender: FDA-Public Use
  Company Number: NL-MYLANLABS-2020M1008516

PATIENT
  Age: 85 Year
  Sex: Female
  Weight: 64.2 kg

DRUGS (5)
  1. SPIRONOLACTON [Concomitant]
     Active Substance: SPIRONOLACTONE
     Dosage: 1DD
  2. COLECALCIFEROL [Concomitant]
     Active Substance: CHOLECALCIFEROL
     Dosage: UNK
     Route: 048
  3. SOTALOL. [Suspect]
     Active Substance: SOTALOL
     Indication: ATRIAL FIBRILLATION
     Dosage: 2
     Route: 048
     Dates: start: 2009, end: 20191101
  4. ZOLPIDEMTARTRAAT [Concomitant]
     Active Substance: ZOLPIDEM TARTRATE
     Dosage: 1DD
  5. OMEPRAZOL MYLAN                    /00661201/ [Concomitant]
     Active Substance: OMEPRAZOLE
     Dosage: 1DD

REACTIONS (1)
  - Cardiac arrest [Recovered/Resolved]

NARRATIVE: CASE EVENT DATE: 20191101
